FAERS Safety Report 7981120-1 (Version None)
Quarter: 2011Q4

REPORT INFORMATION
  Report Type: 
  Country: None (occurrence: None)
  Receive Date: 20111212
  Receipt Date: 20111121
  Transmission Date: 20120403
  Serious: Yes (Life-Threatening, Hospitalization)
  Sender: FDA-Public Use
  Company Number: ALK_02080_2011

PATIENT
  Sex: Male
  Weight: 83.9154 kg

DRUGS (6)
  1. XANAX [Concomitant]
  2. ADDERALL 5 [Concomitant]
  3. VIVITROL [Suspect]
     Indication: DRUG DEPENDENCE
     Dosage: (INTRAMUSCULAR)
     Route: 030
     Dates: start: 20111006
  4. ANTIBIOTICS [Concomitant]
  5. TRAZODONE HCL [Concomitant]
  6. ALBUTEROL [Concomitant]

REACTIONS (5)
  - ANXIETY [None]
  - OVERDOSE [None]
  - PNEUMONIA [None]
  - DRUG EFFECT DECREASED [None]
  - WITHDRAWAL SYNDROME [None]
